FAERS Safety Report 21136108 (Version 2)
Quarter: 2022Q4

REPORT INFORMATION
  Report Type: Spontaneous
  Country: JP (occurrence: None)
  Receive Date: 20220727
  Receipt Date: 20221115
  Transmission Date: 20230112
  Serious: Yes (Other)
  Sender: FDA-Public Use
  Company Number: JP-ROCHE-3147166

PATIENT
  Sex: Female

DRUGS (2)
  1. RIVOTRIL [Suspect]
     Active Substance: CLONAZEPAM
     Indication: Completed suicide
     Route: 048
     Dates: start: 20220618, end: 20220618
  2. LORAZEPAM [Suspect]
     Active Substance: LORAZEPAM
     Indication: Completed suicide
     Route: 048
     Dates: start: 20220618, end: 20220618

REACTIONS (3)
  - Suicide attempt [Unknown]
  - Intentional overdose [Unknown]
  - Somnolence [Unknown]

NARRATIVE: CASE EVENT DATE: 20220618
